FAERS Safety Report 10084391 (Version 1)
Quarter: 2014Q2

REPORT INFORMATION
  Report Type: Spontaneous
  Country: IT (occurrence: IT)
  Receive Date: 20140417
  Receipt Date: 20140417
  Transmission Date: 20141212
  Serious: Yes (Hospitalization)
  Sender: FDA-Public Use
  Company Number: IT-BAXTER-2014BAX018461

PATIENT
  Age: 21 Year
  Sex: Female

DRUGS (8)
  1. METRONIDAZOLO BAXTER 0,5% [Suspect]
     Indication: POISONING DELIBERATE
     Route: 048
     Dates: start: 20140219, end: 20140219
  2. DICLOFENAC [Suspect]
     Indication: POISONING DELIBERATE
     Route: 048
     Dates: start: 20140219, end: 20140219
  3. SIMVASTATINA ABC [Suspect]
     Indication: POISONING DELIBERATE
     Route: 048
     Dates: start: 20140219, end: 20140219
  4. PLASIL [Suspect]
     Indication: POISONING DELIBERATE
     Route: 048
     Dates: start: 20140219, end: 20140219
  5. RAMIPRIL [Suspect]
     Indication: POISONING DELIBERATE
     Route: 048
     Dates: start: 20140219, end: 20140219
  6. TRIMETON [Suspect]
     Indication: POISONING DELIBERATE
     Route: 048
     Dates: start: 20140219, end: 20140219
  7. CO EFFERALGAN [Suspect]
     Indication: POISONING DELIBERATE
     Route: 048
     Dates: start: 20140219, end: 20140219
  8. METFORMINA [Suspect]
     Indication: POISONING DELIBERATE
     Route: 048
     Dates: start: 20140219, end: 20140219

REACTIONS (1)
  - Poisoning deliberate [Recovered/Resolved]
